FAERS Safety Report 17293932 (Version 2)
Quarter: 2021Q2

REPORT INFORMATION
  Report Type: Spontaneous
  Country: US (occurrence: US)
  Receive Date: 20200121
  Receipt Date: 20210413
  Transmission Date: 20210716
  Serious: No
  Sender: FDA-Public Use
  Company Number: US-SA-2020SA014282

PATIENT

DRUGS (1)
  1. UNISOM SLEEPGELS NIGHTTIME SLEEP?AID [Suspect]
     Active Substance: DIPHENHYDRAMINE HYDROCHLORIDE
     Dosage: UNK UNK, UNK
     Route: 065

REACTIONS (5)
  - Dizziness [Unknown]
  - Sneezing [Unknown]
  - Pain [Unknown]
  - Back pain [Unknown]
  - Pyrexia [Unknown]
